FAERS Safety Report 13014470 (Version 1)
Quarter: 2016Q4

REPORT INFORMATION
  Report Type: Spontaneous
  Country: US (occurrence: US)
  Receive Date: 20161209
  Receipt Date: 20161209
  Transmission Date: 20170207
  Serious: Yes (Hospitalization)
  Sender: FDA-Public Use
  Company Number: US-BEH-2016075863

PATIENT
  Age: 23 Year
  Sex: Female
  Weight: 57.82 kg

DRUGS (29)
  1. SODIUM CHLORIDE. [Concomitant]
     Active Substance: SODIUM CHLORIDE
  2. DIPHENHYDRAMINE. [Concomitant]
     Active Substance: DIPHENHYDRAMINE
  3. BACLOFEN. [Concomitant]
     Active Substance: BACLOFEN
  4. BACLOFEN. [Concomitant]
     Active Substance: BACLOFEN
  5. EPIPEN [Concomitant]
     Active Substance: EPINEPHRINE
  6. IRON [Concomitant]
     Active Substance: IRON
  7. CIPROFLOXACIN. [Concomitant]
     Active Substance: CIPROFLOXACIN
  8. ACETAMINOPHEN. [Concomitant]
     Active Substance: ACETAMINOPHEN
  9. MEPHYTON [Concomitant]
     Active Substance: PHYTONADIONE
  10. MULTIVITAMINS, PLAIN [Concomitant]
     Active Substance: VITAMINS
  11. SINGULAIR [Concomitant]
     Active Substance: MONTELUKAST SODIUM
  12. NAPROXEN. [Concomitant]
     Active Substance: NAPROXEN
  13. ACTIGALL [Concomitant]
     Active Substance: URSODIOL
  14. COLACE [Concomitant]
     Active Substance: DOCUSATE SODIUM
  15. AMITRIPTYLINE [Concomitant]
     Active Substance: AMITRIPTYLINE
  16. PROZAC [Concomitant]
     Active Substance: FLUOXETINE HYDROCHLORIDE
  17. LMX                                /00033401/ [Concomitant]
  18. SEROQUEL [Concomitant]
     Active Substance: QUETIAPINE FUMARATE
  19. ALBUTEROL                          /00139501/ [Concomitant]
     Active Substance: ALBUTEROL
  20. ZYRTEC [Concomitant]
     Active Substance: CETIRIZINE HYDROCHLORIDE
  21. HIZENTRA [Suspect]
     Active Substance: HUMAN IMMUNOGLOBULIN G
     Indication: SELECTIVE IGG SUBCLASS DEFICIENCY
     Dosage: 10 G, QOW
     Route: 058
     Dates: start: 20161031
  22. PREDNISONE. [Concomitant]
     Active Substance: PREDNISONE
  23. SYMBICORT [Concomitant]
     Active Substance: BUDESONIDE\FORMOTEROL FUMARATE DIHYDRATE
  24. ONDANSETRON [Concomitant]
     Active Substance: ONDANSETRON
  25. SYMBICORT [Concomitant]
     Active Substance: BUDESONIDE\FORMOTEROL FUMARATE DIHYDRATE
  26. MELATONIN [Concomitant]
     Active Substance: MELATONIN
  27. PROTONIX [Concomitant]
     Active Substance: PANTOPRAZOLE SODIUM
  28. FLONASE [Concomitant]
     Active Substance: FLUTICASONE PROPIONATE
  29. ZENPEP [Concomitant]
     Active Substance: PANCRELIPASE AMYLASE\PANCRELIPASE LIPASE\PANCRELIPASE PROTEASE

REACTIONS (2)
  - Chest pain [Unknown]
  - Dyspnoea [Unknown]

NARRATIVE: CASE EVENT DATE: 20161130
